FAERS Safety Report 18189807 (Version 2)
Quarter: 2021Q4

REPORT INFORMATION
  Report Type: Spontaneous
  Country: US (occurrence: US)
  Receive Date: 20200825
  Receipt Date: 20211203
  Transmission Date: 20220303
  Serious: No
  Sender: FDA-Public Use
  Company Number: US-SA-2020SA216338

PATIENT
  Sex: Female

DRUGS (10)
  1. DUPIXENT [Suspect]
     Active Substance: DUPILUMAB
     Indication: Dermatitis atopic
     Dosage: 300 MG, QW
     Route: 058
     Dates: start: 20200623
  2. ACETAMINOPHEN [Concomitant]
     Active Substance: ACETAMINOPHEN
  3. CETIRIZINE HYDROCHLORIDE [Concomitant]
     Active Substance: CETIRIZINE HYDROCHLORIDE
  4. CARISOPRODOL [Concomitant]
     Active Substance: CARISOPRODOL
  5. DOXEPIN HCL [Concomitant]
     Active Substance: DOXEPIN HYDROCHLORIDE
  6. FLUOCINONIDE [Concomitant]
     Active Substance: FLUOCINONIDE
  7. NASACORT ALLERGY 24HR [Concomitant]
     Active Substance: TRIAMCINOLONE ACETONIDE
  8. PREDNISONE [Concomitant]
     Active Substance: PREDNISONE
  9. SUMATRIPTAN SUCCINATE [Concomitant]
     Active Substance: SUMATRIPTAN SUCCINATE
  10. TRIAMCINOLONE ACETONIDE [Concomitant]
     Active Substance: TRIAMCINOLONE ACETONIDE

REACTIONS (2)
  - Product use issue [Unknown]
  - Product dose omission issue [Unknown]
